FAERS Safety Report 4412744-6 (Version None)
Quarter: 2004Q2

REPORT INFORMATION
  Report Type: 
  Country: None (occurrence: None)
  Receive Date: 20040630
  Receipt Date: 20040517
  Transmission Date: 20050107
  Serious: No
  Sender: FDA-Public Use
  Company Number: 04P-163-0261012-00

PATIENT
  Age: 57 Year
  Sex: Female
  Weight: 129.7287 kg

DRUGS (8)
  1. HUMIRA [Suspect]
     Indication: RHEUMATOID ARTHRITIS
     Dosage: 40 MG, 1 IN 2 WK, SUBCUTANEOUS
     Route: 058
     Dates: start: 20040416
  2. PRIMOX PLUS [Concomitant]
  3. LEFLUNOMIDE [Concomitant]
  4. AZATHIOPRINE [Concomitant]
  5. ROSIGLITAZONE MALEATE [Concomitant]
  6. INSULIN INJECTION, ISOPHANE [Concomitant]
  7. INSULIN [Concomitant]
  8. CYCLOBENZAPRINE HYDROCHLORIDE [Concomitant]

REACTIONS (1)
  - INJECTION SITE BURNING [None]
